FAERS Safety Report 4727578-2 (Version None)
Quarter: 2005Q3

REPORT INFORMATION
  Report Type: 
  Country: None (occurrence: None)
  Receive Date: 20050727
  Receipt Date: 20050727
  Transmission Date: 20060218
  Serious: Yes (Death)
  Sender: FDA-Public Use
  Company Number: None

PATIENT
  Age: 60 Year
  Sex: Female
  Weight: 136.0791 kg

DRUGS (25)
  1. EXEMESTANE [Suspect]
     Indication: BREAST CANCER
     Dosage: 1 TAB (25 MG )QD
     Dates: start: 20030401, end: 20050707
  2. AMIODARONE [Concomitant]
  3. HUMULIN N [Concomitant]
  4. LEVOXYL [Concomitant]
  5. GLYBURIDE [Concomitant]
  6. ZOLOFT [Concomitant]
  7. CLONAZEPAM [Concomitant]
  8. FUROSEMIDE [Concomitant]
  9. HYDROCODONE BITARTRATE + ACETAMINOPHEN [Concomitant]
  10. DIPHENHYDRAMINE HCL [Concomitant]
  11. IBUPROFEN [Concomitant]
  12. LISINOPRIL [Concomitant]
  13. GABAPENTIN [Concomitant]
  14. FERROUS SO4 [Concomitant]
  15. EXEMESTANE [Concomitant]
  16. HYDROCHLOROTHIAZIDE [Concomitant]
  17. ISOSORBIDE MONONITRATE [Concomitant]
  18. KLOR-CON [Concomitant]
  19. NITROQUICK [Concomitant]
  20. BAYER [Concomitant]
  21. CRESTOR [Concomitant]
  22. DOC-Q-LACE [Concomitant]
  23. LORATADINE [Concomitant]
  24. CYCLOBENZAPRINE HCL [Concomitant]
  25. CEPHALEXIN [Concomitant]

REACTIONS (1)
  - MYOCARDIAL INFARCTION [None]
